FAERS Safety Report 8544205-7 (Version None)
Quarter: 2012Q3

REPORT INFORMATION
  Report Type: 
  Country: None (occurrence: None)
  Receive Date: 20120727
  Receipt Date: 20120724
  Transmission Date: 20120928
  Serious: Yes (Other)
  Sender: FDA-Public Use
  Company Number: PHHY2012BR042642

PATIENT
  Sex: Male

DRUGS (10)
  1. ONBREZ [Suspect]
     Indication: PNEUMONIA
  2. FLUTICASONE PROPIONATE/SALMETEROL [Suspect]
     Indication: LUNG DISORDER
     Dosage: 1 TIME DAILY
  3. SPIRIVA [Suspect]
     Dosage: 1 TIME DAILY
  4. ONBREZ [Suspect]
     Indication: NASOPHARYNGITIS
     Dosage: 150 MG, QD
  5. METFORMIN HYDROCHLORIDE [Concomitant]
     Dosage: 500 MG, UNK
  6. TARGIFOR [Suspect]
     Dosage: 1 DF, QD
     Route: 048
  7. SIMVASTATIN [Concomitant]
     Dosage: 40 MG, UNK
  8. LEVOTHYROXINE SODIUM [Concomitant]
     Dosage: 75 UG, UNK
  9. CLOPIDOGREL [Concomitant]
     Dosage: 75 MG, UNK
  10. AMILORIDE HCL AND HYDROCHLOROTHIAZIDE [Concomitant]

REACTIONS (3)
  - PNEUMONIA [None]
  - INCREASED BRONCHIAL SECRETION [None]
  - NASOPHARYNGITIS [None]
